FAERS Safety Report 7199153-4 (Version None)
Quarter: 2010Q4

REPORT INFORMATION
  Report Type: 
  Country: None (occurrence: None)
  Receive Date: 20101228
  Receipt Date: 20101215
  Transmission Date: 20110411
  Serious: Yes (Death, Other)
  Sender: FDA-Public Use
  Company Number: US-CELGENEUS-163-21880-10122419

PATIENT

DRUGS (3)
  1. REVLIMID [Suspect]
     Route: 048
  2. MELPHALAN [Suspect]
     Route: 065
  3. DEXAMETHASONE [Suspect]
     Route: 065

REACTIONS (6)
  - ANAEMIA [None]
  - DEATH [None]
  - DISEASE PROGRESSION [None]
  - INFECTION [None]
  - NEUTROPENIA [None]
  - THROMBOCYTOPENIA [None]
